FAERS Safety Report 25467198 (Version 1)
Quarter: 2025Q2

REPORT INFORMATION
  Report Type: Spontaneous
  Country: PT (occurrence: PT)
  Receive Date: 20250623
  Receipt Date: 20250623
  Transmission Date: 20250716
  Serious: Yes (Hospitalization)
  Sender: EMD SERONO INC
  Company Number: None

PATIENT
  Age: 51 Year
  Sex: Female

DRUGS (2)
  1. METFORMIN [Suspect]
     Active Substance: METFORMIN HYDROCHLORIDE
     Indication: Diabetes mellitus
     Dates: start: 20200915, end: 20240308
  2. FOLYOBEN [Concomitant]
     Indication: Product used for unknown indication
     Dosage: 1 TABLET AT 9AM AND 1 TABLET AT 11PM??0.4 MG + 0.002 MG + 0.2 MG
     Dates: start: 20240308

REACTIONS (2)
  - Syncope [Recovered/Resolved]
  - Wernicke-Korsakoff syndrome [Recovering/Resolving]

NARRATIVE: CASE EVENT DATE: 20240308
